FAERS Safety Report 17743298 (Version 1)
Quarter: 2020Q2

REPORT INFORMATION
  Report Type: Report from Study
  Country: KR (occurrence: KR)
  Receive Date: 20200505
  Receipt Date: 20200505
  Transmission Date: 20200714
  Serious: Yes (Hospitalization)
  Sender: FDA-Public Use
  Company Number: KR-ROCHE-2568115

PATIENT
  Age: 66 Year
  Sex: Female
  Weight: 53 kg

DRUGS (18)
  1. MYPOL [CODEINE PHOSPHATE;IBUPROFEN;PARACETAMOL] [Concomitant]
     Route: 065
     Dates: start: 20200302
  2. ACTONEL EC [Concomitant]
     Route: 065
     Dates: start: 201910
  3. STOGAR [Concomitant]
     Active Substance: LAFUTIDINE
     Route: 065
     Dates: start: 201910
  4. PERTUZUMAB. [Suspect]
     Active Substance: PERTUZUMAB
     Indication: HER2 POSITIVE BREAST CANCER
     Dosage: DATE OF MOST RECENT DOSE OF PERTUZUMAB (420 MG) PRIOR TO AE ONSET: 02/MAR/2020
     Route: 042
     Dates: start: 20200210, end: 20200210
  5. PERTUZUMAB. [Suspect]
     Active Substance: PERTUZUMAB
     Route: 042
     Dates: start: 20200302, end: 20200302
  6. DOCETAXEL. [Suspect]
     Active Substance: DOCETAXEL
     Route: 042
     Dates: start: 20200302
  7. ARTRODAR [Concomitant]
     Active Substance: DIACEREIN
     Route: 065
     Dates: start: 201910
  8. XYZAL [Concomitant]
     Active Substance: LEVOCETIRIZINE DIHYDROCHLORIDE
     Route: 065
     Dates: start: 20200302
  9. TRASTUZUMAB. [Suspect]
     Active Substance: TRASTUZUMAB
     Indication: HER2 POSITIVE BREAST CANCER
     Dosage: DATE OF MOST RECENT DOSE OF TRASTUZUMAB (600 MG) PRIOR TO AE ONSET: 02/MAR/2020
     Route: 058
     Dates: start: 20200210, end: 20200210
  10. TRASTUZUMAB. [Suspect]
     Active Substance: TRASTUZUMAB
     Route: 058
     Dates: start: 20200302, end: 20200302
  11. LOPERAMIDE [Concomitant]
     Active Substance: LOPERAMIDE
     Route: 065
     Dates: start: 20200302
  12. DOCETAXEL. [Suspect]
     Active Substance: DOCETAXEL
     Indication: HER2 POSITIVE BREAST CANCER
     Dosage: DATE OF MOST RECENT DOSE OF DOCETAXEL (75 MG/M2) PRIOR TO AE ONSET: 02/MAR/2020
     Route: 042
     Dates: start: 20200210, end: 20200210
  13. ATORVASTATIN [Concomitant]
     Active Substance: ATORVASTATIN
     Route: 065
     Dates: start: 2005
  14. ATEZOLIZUMAB. [Suspect]
     Active Substance: ATEZOLIZUMAB
     Route: 042
     Dates: start: 20200302, end: 20200302
  15. CALTEO [Concomitant]
     Route: 065
     Dates: start: 201910
  16. TAZOPERAN [Concomitant]
     Route: 065
     Dates: start: 20200312, end: 20200314
  17. LUCOSTINE [Concomitant]
     Route: 065
     Dates: start: 20200312
  18. ATEZOLIZUMAB. [Suspect]
     Active Substance: ATEZOLIZUMAB
     Indication: HER2 POSITIVE BREAST CANCER
     Dosage: DATE OF MOST RECENT DOSE OF ATEZOLIZUMAB (1200 MG) PRIOR TO AE ONSET: 02/MAR/2020
     Route: 042
     Dates: start: 20200210, end: 20200210

REACTIONS (3)
  - Febrile neutropenia [Recovered/Resolved]
  - Pyrexia [Recovered/Resolved]
  - Neutrophil count decreased [Recovered/Resolved]

NARRATIVE: CASE EVENT DATE: 20200312
